FAERS Safety Report 8984184 (Version 1)
Quarter: 2012Q4

REPORT INFORMATION
  Report Type: 
  Country: BR (occurrence: BR)
  Receive Date: 20121226
  Receipt Date: 20121226
  Transmission Date: 20130627
  Serious: Yes (Hospitalization)
  Sender: FDA-Public Use
  Company Number: BR-AMGEN-BRASP2012082672

PATIENT
  Age: 46 Year
  Sex: Male
  Weight: 87.98 kg

DRUGS (1)
  1. ENBREL [Suspect]
     Indication: PSORIATIC ARTHROPATHY
     Dosage: 50 mg, once weekly
     Dates: start: 201010, end: 201202

REACTIONS (1)
  - Psoriatic arthropathy [Unknown]
